FAERS Safety Report 9982122 (Version 2)
Quarter: 2014Q1

REPORT INFORMATION
  Report Type: Report from Study
  Country: US (occurrence: US)
  Receive Date: 20140307
  Receipt Date: 20140307
  Transmission Date: 20141002
  Serious: No
  Sender: FDA-Public Use
  Company Number: US-ABBVIE-13P-163-1171030-00

PATIENT
  Age: 28 Year
  Sex: Male

DRUGS (8)
  1. HUMIRA [Suspect]
     Indication: COLITIS ULCERATIVE
     Dosage: LOADING DOSE
     Dates: start: 20131111, end: 20131111
  2. 6-MP [Suspect]
     Indication: PRODUCT USED FOR UNKNOWN INDICATION
     Dates: end: 20131115
  3. LIALDA [Concomitant]
     Indication: COLITIS ULCERATIVE
  4. LORAZEPAM [Concomitant]
     Indication: ANXIETY
  5. LOMOTIL [Concomitant]
     Indication: GASTRIC DISORDER
  6. FLORASTOR [Concomitant]
     Indication: PRODUCT USED FOR UNKNOWN INDICATION
  7. CANASA [Concomitant]
     Indication: COLITIS
  8. FIBER [Concomitant]
     Indication: PRODUCT USED FOR UNKNOWN INDICATION
     Dosage: PILLS

REACTIONS (4)
  - Chills [Unknown]
  - Decreased appetite [Unknown]
  - White blood cell count decreased [Not Recovered/Not Resolved]
  - Pyrexia [Recovered/Resolved]
